FAERS Safety Report 8553945-5 (Version None)
Quarter: 2012Q3

REPORT INFORMATION
  Report Type: 
  Country: None (occurrence: None)
  Receive Date: 20120731
  Receipt Date: 20120727
  Transmission Date: 20120928
  Serious: Yes (Death, Other)
  Sender: FDA-Public Use
  Company Number: US-ASTRAZENECA-2012SE53412

PATIENT
  Age: 61 Year
  Sex: Male
  Weight: 86.2 kg

DRUGS (2)
  1. CHOLESTEROL MEDICATION [Concomitant]
  2. SYMBICORT [Suspect]
     Route: 055

REACTIONS (5)
  - ASTHMA [None]
  - MYOCARDIAL INFARCTION [None]
  - WEIGHT DECREASED [None]
  - MALAISE [None]
  - APHAGIA [None]
